FAERS Safety Report 7907579-3 (Version None)
Quarter: 2011Q4

REPORT INFORMATION
  Report Type: 
  Country: None (occurrence: None)
  Receive Date: 20111109
  Receipt Date: 20111109
  Transmission Date: 20120403
  Serious: Yes (Other)
  Sender: FDA-Public Use
  Company Number: None

PATIENT
  Sex: Male
  Weight: 68.0396 kg

DRUGS (1)
  1. DEXILANT [Suspect]
     Indication: ABDOMINAL PAIN UPPER
     Dosage: 60 MG;1 A DAY
     Dates: start: 20110101, end: 20110618

REACTIONS (3)
  - UPPER RESPIRATORY TRACT INFECTION [None]
  - ARTHRALGIA [None]
  - DYSPNOEA [None]
